FAERS Safety Report 13286744 (Version 1)
Quarter: 2017Q1

REPORT INFORMATION
  Report Type: Spontaneous
  Country: CA (occurrence: CA)
  Receive Date: 20170301
  Receipt Date: 20170301
  Transmission Date: 20170428
  Serious: Yes (Other)
  Sender: FDA-Public Use
  Company Number: CA-CONCORDIA PHARMACEUTICALS INC.-GSH201702-001336

PATIENT
  Sex: Female

DRUGS (9)
  1. PLAQUENIL [Suspect]
     Active Substance: HYDROXYCHLOROQUINE SULFATE
     Indication: PRODUCT USED FOR UNKNOWN INDICATION
     Route: 065
     Dates: start: 2000
  2. ENBREL [Suspect]
     Active Substance: ETANERCEPT
     Indication: RHEUMATOID ARTHRITIS
     Route: 058
     Dates: start: 2004, end: 2008
  3. XELJANZ [Concomitant]
     Active Substance: TOFACITINIB CITRATE
  4. METHOTREXATE. [Suspect]
     Active Substance: METHOTREXATE
     Indication: RHEUMATOID ARTHRITIS
     Route: 065
     Dates: start: 2002, end: 2016
  5. SIMPONI [Concomitant]
     Active Substance: GOLIMUMAB
     Dates: end: 201612
  6. PREDNISONE. [Concomitant]
     Active Substance: PREDNISONE
  7. HUMIRA [Suspect]
     Active Substance: ADALIMUMAB
     Indication: PRODUCT USED FOR UNKNOWN INDICATION
     Route: 065
     Dates: end: 2016
  8. SULFASALAZINE. [Concomitant]
     Active Substance: SULFASALAZINE
  9. ADALIMUMAB [Concomitant]
     Active Substance: ADALIMUMAB
     Dates: start: 2008, end: 2016

REACTIONS (6)
  - Musculoskeletal disorder [Unknown]
  - Arthralgia [Unknown]
  - Pain [Unknown]
  - Drug effect decreased [Unknown]
  - Hepatotoxicity [Unknown]
  - Musculoskeletal pain [Unknown]
